FAERS Safety Report 22145106 (Version 3)
Quarter: 2023Q2

REPORT INFORMATION
  Report Type: Report from Study
  Country: US (occurrence: US)
  Receive Date: 20230328
  Receipt Date: 20230609
  Transmission Date: 20230722
  Serious: No
  Sender: FDA-Public Use
  Company Number: US-002147023-NVSC2023US071133

PATIENT
  Sex: Male

DRUGS (1)
  1. ENTRESTO [Suspect]
     Active Substance: SACUBITRIL\VALSARTAN
     Indication: Product used for unknown indication
     Dosage: 0.5 DOSAGE FORM, BID
     Route: 065

REACTIONS (12)
  - Decreased activity [Unknown]
  - Back pain [Unknown]
  - Throat clearing [Unknown]
  - Memory impairment [Unknown]
  - Visual impairment [Unknown]
  - Underdose [Unknown]
  - Hypotension [Unknown]
  - Cough [Unknown]
  - Gait disturbance [Unknown]
  - Fatigue [Unknown]
  - Wrong technique in product usage process [Unknown]
  - Product dose omission issue [Unknown]
